FAERS Safety Report 10210708 (Version 1)
Quarter: 2014Q2

REPORT INFORMATION
  Report Type: Spontaneous
  Country: US (occurrence: None)
  Receive Date: 20140530
  Receipt Date: 20140530
  Transmission Date: 20141212
  Serious: No
  Sender: FDA-Public Use
  Company Number: None

PATIENT
  Age: 54 Year
  Sex: Female

DRUGS (1)
  1. AFINITOR [Suspect]
     Indication: BREAST CANCER
     Dosage: 7.5MG, QD, PO
     Route: 048

REACTIONS (3)
  - Dyspnoea [None]
  - Diarrhoea [None]
  - Photosensitivity reaction [None]
